FAERS Safety Report 16046115 (Version 2)
Quarter: 2019Q2

REPORT INFORMATION
  Report Type: Spontaneous
  Country: JP (occurrence: JP)
  Receive Date: 20190307
  Receipt Date: 20190403
  Transmission Date: 20190711
  Serious: Yes (Death, Hospitalization, Other)
  Sender: FDA-Public Use
  Company Number: JP-BRISTOL-MYERS SQUIBB COMPANY-BMS-2019-022910

PATIENT
  Age: 66 Year
  Sex: Male

DRUGS (1)
  1. OPDIVO [Suspect]
     Active Substance: NIVOLUMAB
     Indication: GASTRIC CANCER
     Dosage: UNK
     Route: 041
     Dates: start: 201711

REACTIONS (7)
  - Dehydration [Unknown]
  - Death [Fatal]
  - Disseminated intravascular coagulation [Unknown]
  - Metastases to liver [Unknown]
  - Aphasia [Unknown]
  - Altered state of consciousness [Unknown]
  - Leukoencephalopathy [Unknown]

NARRATIVE: CASE EVENT DATE: 20171128
